FAERS Safety Report 4528316-9 (Version None)
Quarter: 2004Q4

REPORT INFORMATION
  Report Type: 
  Country: None (occurrence: None)
  Receive Date: 20041130
  Receipt Date: 20040820
  Transmission Date: 20050328
  Serious: No
  Sender: FDA-Public Use
  Company Number: WAES 0408USA01694

PATIENT
  Sex: Female

DRUGS (4)
  1. ZETIA [Suspect]
     Indication: HYPERCHOLESTEROLAEMIA
     Dosage: 10 MG DAILY PO
     Route: 048
     Dates: start: 20040729, end: 20040801
  2. ACTONEL [Concomitant]
  3. FLONASE [Concomitant]
  4. NEURONTIN [Concomitant]

REACTIONS (2)
  - BLOOD BLISTER [None]
  - RASH [None]
